FAERS Safety Report 8000214-8 (Version None)
Quarter: 2011Q4

REPORT INFORMATION
  Report Type: 
  Country: None (occurrence: None)
  Receive Date: 20111123
  Receipt Date: 20111101
  Transmission Date: 20120403
  Serious: Yes (Other)
  Sender: FDA-Public Use
  Company Number: 336066

PATIENT
  Weight: 90.1 kg

DRUGS (7)
  1. SIMVASTATIN [Concomitant]
  2. VICTOZA [Suspect]
     Indication: TYPE 2 DIABETES MELLITUS
     Dosage: 0.06 MG, QD, SUBCUTANEOUS
     Route: 058
     Dates: start: 20101122, end: 20101206
  3. METFORMIN HCL [Concomitant]
  4. VICTOZA [Suspect]
     Dosage: 1.2 MG, QD
     Dates: start: 20101207, end: 20110301
  5. VITAMIN B (VITAMIN-B COMPLEX STANDARD) [Concomitant]
  6. ERGOCALCIFEROL [Concomitant]
  7. ASPIRIN [Concomitant]

REACTIONS (1)
  - PANCREATITIS [None]
